FAERS Safety Report 25835801 (Version 1)
Quarter: 2025Q3

REPORT INFORMATION
  Report Type: Spontaneous
  Country: US (occurrence: None)
  Receive Date: 20250922
  Receipt Date: 20250922
  Transmission Date: 20251021
  Serious: Yes (Life-Threatening, Disabling)
  Sender: FDA-CTU
  Company Number: None

PATIENT

DRUGS (3)
  1. HERBALS\HONEY [Suspect]
     Active Substance: HERBALS\HONEY
  2. SILDENAFIL [Suspect]
     Active Substance: SILDENAFIL
  3. TADALAFIL [Concomitant]
     Active Substance: TADALAFIL

REACTIONS (2)
  - Product formulation issue [None]
  - Product advertising issue [None]

NARRATIVE: CASE EVENT DATE: 20250916
